FAERS Safety Report 4635705-0 (Version None)
Quarter: 2005Q2

REPORT INFORMATION
  Report Type: 
  Country: None (occurrence: None)
  Receive Date: 20050413
  Receipt Date: 20050331
  Transmission Date: 20051028
  Serious: Yes (Hospitalization)
  Sender: FDA-Public Use
  Company Number: US-2005-000302

PATIENT
  Age: 61 Year
  Sex: Female
  Weight: 70.3 kg

DRUGS (1)
  1. BETASERON [Suspect]
     Indication: SECONDARY PROGRESSIVE MULTIPLE SCLEROSIS
     Dosage: 8 MIU, EVERY 2D, SUBCUTANEOUS
     Route: 058
     Dates: start: 20000601

REACTIONS (6)
  - ASTHENIA [None]
  - BLOOD URINE PRESENT [None]
  - CARPAL TUNNEL SYNDROME [None]
  - COOMBS POSITIVE HAEMOLYTIC ANAEMIA [None]
  - NEUTRALISING ANTIBODIES [None]
  - WHEELCHAIR USER [None]
